FAERS Safety Report 9096744 (Version 2)
Quarter: 2013Q1

REPORT INFORMATION
  Report Type: Spontaneous
  Country: US (occurrence: US)
  Receive Date: 20130211
  Receipt Date: 20130222
  Transmission Date: 20140127
  Serious: Yes (Other)
  Sender: FDA-Public Use
  Company Number: PHEH2013US000667

PATIENT
  Age: 65 Year
  Sex: Female

DRUGS (9)
  1. RECLAST [Suspect]
     Dosage: UNK
     Route: 042
     Dates: start: 20120829
  2. LAMITEL [Concomitant]
  3. PREMARIN [Concomitant]
  4. SYNTHROID [Concomitant]
  5. CHOLESTYRAMINE [Concomitant]
  6. DIAZEPAM [Concomitant]
  7. CODIN [Concomitant]
  8. BACLOFEN [Concomitant]
  9. VITAMIN D [Concomitant]

REACTIONS (9)
  - Visual impairment [Unknown]
  - Haemorrhage [Unknown]
  - Gastrointestinal stoma complication [Unknown]
  - Jaw disorder [Unknown]
  - Gingival disorder [Unknown]
  - Vitreous floaters [Unknown]
  - Arthralgia [Unknown]
  - Urticaria [Unknown]
  - Pruritus [Unknown]
